FAERS Safety Report 15016310 (Version 2)
Quarter: 2018Q3

REPORT INFORMATION
  Report Type: Spontaneous
  Country: US (occurrence: US)
  Receive Date: 20180615
  Receipt Date: 20180913
  Transmission Date: 20181010
  Serious: No
  Sender: FDA-Public Use
  Company Number: US-ALLERGAN-1826512US

PATIENT
  Age: 34 Year
  Sex: Male

DRUGS (4)
  1. ACZONE [Suspect]
     Active Substance: DAPSONE
     Dosage: 1 GTT, QD
     Route: 061
     Dates: start: 20180511
  2. ACZONE [Suspect]
     Active Substance: DAPSONE
     Dosage: 1 GTT, QD
     Route: 061
     Dates: start: 20150402
  3. ANTIBIOTICS [Concomitant]
     Active Substance: UNSPECIFIED INGREDIENT
     Dosage: UNK
     Route: 065
  4. ACZONE [Suspect]
     Active Substance: DAPSONE
     Indication: ACNE
     Dosage: 1 GTT, QD
     Route: 061
     Dates: start: 201805, end: 201805

REACTIONS (3)
  - Application site irritation [Unknown]
  - Application site pain [Unknown]
  - Product physical consistency issue [Unknown]

NARRATIVE: CASE EVENT DATE: 20180511
